FAERS Safety Report 9957239 (Version 1)
Quarter: 2014Q1

REPORT INFORMATION
  Report Type: Report from Study
  Country: US (occurrence: US)
  Receive Date: 20140304
  Receipt Date: 20140304
  Transmission Date: 20141002
  Serious: No
  Sender: FDA-Public Use
  Company Number: US-ABBVIE-13P-163-1096910-00

PATIENT
  Age: 69 Year
  Sex: Male

DRUGS (7)
  1. HUMIRA [Suspect]
     Indication: PSORIASIS
     Dates: start: 201209, end: 201303
  2. IMDUR [Concomitant]
     Indication: ANGINA PECTORIS
  3. LABETALOL [Concomitant]
     Indication: HYPERTENSION
  4. LASIX [Concomitant]
     Indication: FLUID RETENTION
  5. LISINOPRIL [Concomitant]
     Indication: HYPERTENSION
  6. POTASSIUM GLUCONATE [Concomitant]
     Indication: MINERAL SUPPLEMENTATION
  7. LIPITOR [Concomitant]
     Indication: BLOOD CHOLESTEROL INCREASED

REACTIONS (1)
  - Psoriasis [Not Recovered/Not Resolved]
